FAERS Safety Report 7016415-1 (Version None)
Quarter: 2010Q3

REPORT INFORMATION
  Report Type: 
  Country: None (occurrence: None)
  Receive Date: 20100909
  Receipt Date: 20100517
  Transmission Date: 20110219
  Serious: Yes (Other)
  Sender: FDA-Public Use
  Company Number: 2010SP027483

PATIENT

DRUGS (1)
  1. SAPHRIS [Suspect]
     Indication: BIPOLAR DISORDER
     Dosage: ; PO
     Route: 048

REACTIONS (2)
  - AKATHISIA [None]
  - INCORRECT ROUTE OF DRUG ADMINISTRATION [None]
